FAERS Safety Report 8037793-0 (Version None)
Quarter: 2012Q1

REPORT INFORMATION
  Report Type: 
  Country: None (occurrence: None)
  Receive Date: 20120111
  Receipt Date: 20120102
  Transmission Date: 20120608
  Serious: Yes (Other)
  Sender: FDA-Public Use
  Company Number: FR-ASTRAZENECA-2012SE00529

PATIENT
  Sex: Female

DRUGS (6)
  1. LAMICTAL [Concomitant]
     Route: 048
  2. OXAZEPAM [Concomitant]
     Route: 048
  3. VENLAFAXINE [Concomitant]
     Route: 048
  4. QUETIAPINE FUMARATE [Suspect]
     Indication: BIPOLAR DISORDER
     Route: 048
     Dates: start: 20111119, end: 20111122
  5. ZOLPIDEM [Concomitant]
     Route: 048
  6. ATARAX [Concomitant]
     Route: 048

REACTIONS (5)
  - ERYTHEMA [None]
  - SEDATION [None]
  - MENSTRUAL DISORDER [None]
  - OEDEMA PERIPHERAL [None]
  - TACHYCARDIA [None]
